FAERS Safety Report 8860688 (Version 2)
Quarter: 2012Q4

REPORT INFORMATION
  Report Type: 
  Country: DE (occurrence: DE)
  Receive Date: 20121025
  Receipt Date: 20121116
  Transmission Date: 20130627
  Serious: Yes (Death)
  Sender: FDA-Public Use
  Company Number: DE-ABBOTT-12P-062-0999217-00

PATIENT
  Sex: Female

DRUGS (3)
  1. CYCLOSPORIN A [Suspect]
     Indication: PRODUCT USED FOR UNKNOWN INDICATION
  2. CORTICOSTEROIDS [Suspect]
     Indication: PRODUCT USED FOR UNKNOWN INDICATION
  3. STEROID [Concomitant]
     Indication: PRODUCT USED FOR UNKNOWN INDICATION

REACTIONS (1)
  - Progressive multifocal leukoencephalopathy [Fatal]
